FAERS Safety Report 9752576 (Version 1)
Quarter: 2013Q4

REPORT INFORMATION
  Report Type: Spontaneous
  Country: GB (occurrence: GB)
  Receive Date: 20131213
  Receipt Date: 20131213
  Transmission Date: 20140711
  Serious: Yes (Other)
  Sender: FDA-Public Use
  Company Number: GB-JNJFOC-20131206472

PATIENT
  Age: 76 Year
  Sex: Male
  Weight: 86 kg

DRUGS (9)
  1. XARELTO [Suspect]
     Indication: ATRIAL FIBRILLATION
     Route: 048
     Dates: start: 201309, end: 20131011
  2. XARELTO [Suspect]
     Indication: CEREBROVASCULAR ACCIDENT PROPHYLAXIS
     Route: 048
     Dates: start: 201309, end: 20131011
  3. ALLOPURINOL [Concomitant]
     Route: 065
  4. ATORVASTATIN [Concomitant]
     Route: 065
  5. BUMETANIDE [Concomitant]
     Route: 065
  6. CANDESARTAN [Concomitant]
     Route: 065
  7. DIGOXIN [Concomitant]
     Route: 065
  8. GLIMEPIRIDE [Concomitant]
     Route: 065
  9. LACIDIPINE [Concomitant]
     Route: 065

REACTIONS (3)
  - Renal failure acute [Recovered/Resolved]
  - Dyspnoea [Recovered/Resolved]
  - Local swelling [Recovered/Resolved]
